FAERS Safety Report 8138002-4 (Version None)
Quarter: 2012Q1

REPORT INFORMATION
  Report Type: 
  Country: None (occurrence: None)
  Receive Date: 20120215
  Receipt Date: 20120208
  Transmission Date: 20120608
  Serious: Yes (Other)
  Sender: FDA-Public Use
  Company Number: FR-PFIZER INC-2012035077

PATIENT
  Age: 19 Year
  Sex: Male

DRUGS (3)
  1. VFEND [Suspect]
     Dosage: 200 MG, 2X/DAY
     Dates: start: 20110823
  2. VFEND [Suspect]
     Dosage: 400 MG, 2X/DAY
  3. VFEND [Suspect]
     Dosage: 200 MG, 2X/DAY
     Dates: start: 20110920

REACTIONS (2)
  - TOXICITY TO VARIOUS AGENTS [None]
  - HEMIANOPIA [None]
